FAERS Safety Report 6199924 (Version 23)
Quarter: 2013Q4

REPORT INFORMATION
  Report Type: Spontaneous
  Country: US (occurrence: US)
  Receive Date: 20061221
  Receipt Date: 20131213
  Transmission Date: 20140711
  Serious: Yes (Death, Other)
  Sender: FDA-Public Use
  Company Number: PHEH2006US15191

PATIENT
  Age: 72 Year
  Sex: Male

DRUGS (32)
  1. ZOMETA [Suspect]
     Dosage: 4 MG, QMO
     Dates: end: 2004
  2. AREDIA [Suspect]
     Dates: start: 19980610
  3. PREDNISONE [Concomitant]
  4. PROSCAR [Concomitant]
     Indication: BENIGN PROSTATIC HYPERPLASIA
  5. BIAXIN [Concomitant]
  6. THALIDOMIDE [Concomitant]
  7. FOLIC ACID [Concomitant]
  8. VITAMIN B6 [Concomitant]
  9. IRON [Concomitant]
  10. ALKERAN [Concomitant]
  11. NORVASC                                 /DEN/ [Concomitant]
  12. VELCADE [Concomitant]
  13. DEXAMETHASONE [Concomitant]
  14. ASPIRIN ^BAYER^ [Concomitant]
  15. VITAMIN B12 [Concomitant]
  16. ADVIL                              /00044201/ [Concomitant]
  17. PROVIGIL [Concomitant]
     Dosage: 20 MG, DAILY
  18. ATIVAN [Concomitant]
     Indication: ANXIETY
     Dosage: 1 MG, DAILY
  19. TYLENOL [Concomitant]
  20. AUGMENTIN [Concomitant]
  21. NORVASC [Concomitant]
     Dosage: 10 MG, QD
     Route: 048
  22. FLEXERIL [Concomitant]
  23. CYMBALTA [Concomitant]
  24. ACIPHEX [Concomitant]
  25. ACETAMINOPHEN [Concomitant]
     Dosage: 650 MG, Q4H PRN
     Route: 048
  26. DOCUSATE SODIUM [Concomitant]
     Dosage: 100 MG, Q8H PRN
  27. PIPERACILLIN W/TAZOBACTAM [Concomitant]
  28. AMLODIPINE [Concomitant]
     Dosage: 10 MG, UNK
     Route: 048
  29. ESOMEPRAZOLE [Concomitant]
     Dosage: 20 MG, UNK
     Route: 048
  30. FINASTERIDE [Concomitant]
     Dosage: 5 MG, UNK
     Route: 048
  31. AZITHROMYCIN [Concomitant]
     Dosage: 500 MG, UNK
     Route: 042
  32. ENOXAPARIN [Concomitant]
     Dosage: 60 MG, UNK

REACTIONS (77)
  - Pneumonia [Fatal]
  - Osteonecrosis of jaw [Unknown]
  - General physical health deterioration [Unknown]
  - Pain [Unknown]
  - Anxiety [Unknown]
  - Osteitis [Unknown]
  - Decreased interest [Unknown]
  - Fistula [Unknown]
  - Tooth fracture [Unknown]
  - Osteomyelitis [Unknown]
  - Limb crushing injury [Unknown]
  - Joint contracture [Unknown]
  - Hiatus hernia [Unknown]
  - Tenderness [Unknown]
  - Synovial disorder [Unknown]
  - Psoriasis [Unknown]
  - Dysplastic naevus [Unknown]
  - Prostatic calcification [Unknown]
  - Inguinal hernia [Unknown]
  - Supraventricular extrasystoles [Unknown]
  - Ventricular extrasystoles [Unknown]
  - Aortic valve calcification [Unknown]
  - Mitral valve incompetence [Unknown]
  - Ventricular dysfunction [Unknown]
  - Basal cell carcinoma [Unknown]
  - Seborrhoeic keratosis [Unknown]
  - Actinic keratosis [Unknown]
  - Second primary malignancy [Unknown]
  - Tachycardia [Unknown]
  - Anaemia [Unknown]
  - Insomnia [Unknown]
  - Pericardial effusion [Unknown]
  - Oesophageal disorder [Unknown]
  - Finger deformity [Unknown]
  - Large intestine polyp [Unknown]
  - Compression fracture [Unknown]
  - Spondylolisthesis [Unknown]
  - Intervertebral disc degeneration [Unknown]
  - Sinus disorder [Unknown]
  - Age-related macular degeneration [Unknown]
  - Vision blurred [Unknown]
  - Subretinal fibrosis [Unknown]
  - Angiomyolipoma [Unknown]
  - Atelectasis [Unknown]
  - Fatigue [Unknown]
  - Neuropathy peripheral [Unknown]
  - Kyphosis [Unknown]
  - Aortic arteriosclerosis [Unknown]
  - Rib fracture [Unknown]
  - Bone scan abnormal [Unknown]
  - Scan bone marrow abnormal [Unknown]
  - Tinnitus [Unknown]
  - Herpes virus infection [Unknown]
  - Contusion [Unknown]
  - Platelet count decreased [Unknown]
  - Mass [Unknown]
  - Cerebral ischaemia [Unknown]
  - Dyspnoea [Unknown]
  - Pulmonary congestion [Unknown]
  - Mitral valve calcification [Unknown]
  - Venous thrombosis [Unknown]
  - Periodontitis [Unknown]
  - Muscular weakness [Unknown]
  - Depression [Unknown]
  - Sedation [Unknown]
  - Osteoporosis [Unknown]
  - Stress fracture [Unknown]
  - Eye degenerative disorder [Unknown]
  - Pain in jaw [Unknown]
  - Fall [Unknown]
  - Productive cough [Unknown]
  - Ecchymosis [Unknown]
  - Excoriation [Unknown]
  - Pulmonary embolism [Unknown]
  - Aortic dilatation [Unknown]
  - Deep vein thrombosis [Unknown]
  - Oedema peripheral [Unknown]
